FAERS Safety Report 20614421 (Version 2)
Quarter: 2025Q2

REPORT INFORMATION
  Report Type: Spontaneous
  Country: US (occurrence: US)
  Receive Date: 20220321
  Receipt Date: 20250609
  Transmission Date: 20250716
  Serious: Yes (Hospitalization, Other)
  Sender: AUROBINDO
  Company Number: US-AUROBINDO-AUR-APL-2022-009013

PATIENT
  Age: 74 Year
  Sex: Female

DRUGS (5)
  1. AMLODIPINE AND OLMESARTAN MEDOXOMIL [Suspect]
     Active Substance: AMLODIPINE BESYLATE\OLMESARTAN MEDOXOMIL
     Indication: Hypertension
     Dosage: UNK UNK, ONCE A DAY
     Route: 065
  2. AMILORIDE [Suspect]
     Active Substance: AMILORIDE
     Indication: Product used for unknown indication
     Route: 065
  3. BERBERINE [Suspect]
     Active Substance: BERBERINE
     Indication: Product used for unknown indication
     Route: 065
  4. CHLORTHALIDONE [Suspect]
     Active Substance: CHLORTHALIDONE
     Indication: Product used for unknown indication
     Route: 065
  5. MOMORDICA CHARANTIA FRUIT [Suspect]
     Active Substance: MOMORDICA CHARANTIA FRUIT
     Indication: Product used for unknown indication
     Route: 065

REACTIONS (3)
  - Hypokalaemia [Unknown]
  - Hypertension [Unknown]
  - Drug interaction [Unknown]
